FAERS Safety Report 6523986-8 (Version None)
Quarter: 2009Q4

REPORT INFORMATION
  Report Type: 
  Country: None (occurrence: None)
  Receive Date: 20091231
  Receipt Date: 20091221
  Transmission Date: 20100525
  Serious: Yes (Hospitalization)
  Sender: FDA-Public Use
  Company Number: US-NOVOPROD-300215

PATIENT
  Sex: Female
  Weight: 92.971 kg

DRUGS (4)
  1. NOVOLOG [Suspect]
     Indication: INSULIN-REQUIRING TYPE 2 DIABETES MELLITUS
     Dosage: SLIDING SCALE
     Route: 058
     Dates: start: 20091001
  2. NOVOLIN N INNOLET [Suspect]
     Indication: INSULIN-REQUIRING TYPE 2 DIABETES MELLITUS
     Dosage: 29 IU, QD
     Route: 058
  3. ANTIHYPERTENSIVES [Concomitant]
     Indication: HYPERTENSION
     Dosage: UNKNOWN
     Route: 048
  4. ALL OTHER THERAPEUTIC PRODUCTS [Concomitant]
     Indication: PROPHYLAXIS AGAINST TRANSPLANT REJECTION
     Dosage: UNKNOWN
     Route: 048
     Dates: start: 20030101

REACTIONS (2)
  - BLOOD GLUCOSE INCREASED [None]
  - GASTROOESOPHAGEAL REFLUX DISEASE [None]
